FAERS Safety Report 8061986-X (Version None)
Quarter: 2012Q1

REPORT INFORMATION
  Report Type: 
  Country: None (occurrence: None)
  Receive Date: 20120123
  Receipt Date: 20120113
  Transmission Date: 20120608
  Serious: Yes (Hospitalization, Other)
  Sender: FDA-Public Use
  Company Number: US-BAYER-2011-080600

PATIENT
  Age: 27 Year
  Sex: Female

DRUGS (4)
  1. YASMIN [Suspect]
     Indication: ACNE
  2. YASMIN [Suspect]
     Indication: PREMENSTRUAL SYNDROME
     Dosage: UNK
     Dates: start: 20010601, end: 20061101
  3. YASMIN [Suspect]
  4. YASMIN [Suspect]
     Indication: ORAL CONTRACEPTION

REACTIONS (9)
  - ANHEDONIA [None]
  - SUPERIOR SAGITTAL SINUS THROMBOSIS [None]
  - PSYCHOLOGICAL TRAUMA [None]
  - CEREBRAL THROMBOSIS [None]
  - AMNESIA [None]
  - INJURY [None]
  - PAIN [None]
  - ANXIETY [None]
  - FEAR [None]
